FAERS Safety Report 11872971 (Version 2)
Quarter: 2016Q2

REPORT INFORMATION
  Report Type: Spontaneous
  Country: US (occurrence: US)
  Receive Date: 20151228
  Receipt Date: 20160608
  Transmission Date: 20160815
  Serious: No
  Sender: FDA-Public Use
  Company Number: US-PFIZER INC-2015465424

PATIENT
  Age: 81 Year
  Sex: Female

DRUGS (2)
  1. XELJANZ [Suspect]
     Active Substance: TOFACITINIB CITRATE
     Indication: PAIN
     Dosage: 5 MG, 2X/DAY
     Route: 048
     Dates: start: 201509
  2. XELJANZ [Suspect]
     Active Substance: TOFACITINIB CITRATE
     Dosage: 5 MG, UNK
     Dates: start: 201504

REACTIONS (3)
  - Drug ineffective for unapproved indication [Unknown]
  - Frequent bowel movements [Unknown]
  - Arthritis [Unknown]

NARRATIVE: CASE EVENT DATE: 201509
